FAERS Safety Report 7797622-7 (Version None)
Quarter: 2011Q4

REPORT INFORMATION
  Report Type: 
  Country: None (occurrence: None)
  Receive Date: 20111005
  Receipt Date: 20110920
  Transmission Date: 20120403
  Serious: Yes (Hospitalization)
  Sender: FDA-Public Use
  Company Number: NL-WATSON-2011-14923

PATIENT
  Age: 3 Month

DRUGS (1)
  1. PROPRANOLOL [Suspect]
     Indication: HAEMANGIOMA
     Dosage: UNK

REACTIONS (2)
  - BRONCHIAL HYPERREACTIVITY [None]
  - HYPOTENSION [None]
